FAERS Safety Report 7817148-1 (Version None)
Quarter: 2011Q4

REPORT INFORMATION
  Report Type: 
  Country: None (occurrence: None)
  Receive Date: 20111017
  Receipt Date: 20111017
  Transmission Date: 20120403
  Serious: Yes (Other)
  Sender: FDA-Public Use
  Company Number: None

PATIENT
  Age: 62 Year
  Sex: Female
  Weight: 56.699 kg

DRUGS (1)
  1. RECLAST [Suspect]
     Indication: OSTEOPOROSIS
     Dates: start: 20100817, end: 20100817

REACTIONS (13)
  - ECONOMIC PROBLEM [None]
  - CARDIAC MURMUR [None]
  - REACTION TO PRESERVATIVES [None]
  - MALAISE [None]
  - PRODUCT SUBSTITUTION ISSUE [None]
  - INJECTION SITE PAIN [None]
  - MIGRAINE [None]
  - CONDITION AGGRAVATED [None]
  - DRUG EFFECT PROLONGED [None]
  - CARDIAC VALVE DISEASE [None]
  - REACTION TO FOOD ADDITIVE [None]
  - GAIT DISTURBANCE [None]
  - ACTIVITIES OF DAILY LIVING IMPAIRED [None]
